FAERS Safety Report 8831640 (Version 3)
Quarter: 2012Q4

REPORT INFORMATION
  Report Type: 
  Country: JP (occurrence: JP)
  Receive Date: 20121009
  Receipt Date: 20121101
  Transmission Date: 20130627
  Serious: Yes (Disabling)
  Sender: FDA-Public Use
  Company Number: JP-GLAXOSMITHKLINE-B0835766A

PATIENT
  Sex: Male
  Weight: 35 kg

DRUGS (3)
  1. FLUTIDE [Suspect]
     Indication: ASTHMA
     Route: 055
     Dates: start: 2007, end: 201207
  2. FLUNASE [Suspect]
     Indication: RHINITIS ALLERGIC
     Route: 045
     Dates: start: 2010, end: 2010
  3. RHINOCORT [Suspect]
     Route: 045

REACTIONS (3)
  - Adrenal insufficiency [Not Recovered/Not Resolved]
  - Failure to thrive [Not Recovered/Not Resolved]
  - Drug interaction [Unknown]
